FAERS Safety Report 14667991 (Version 1)
Quarter: 2018Q1

REPORT INFORMATION
  Report Type: Spontaneous
  Country: US (occurrence: US)
  Receive Date: 20180322
  Receipt Date: 20180322
  Transmission Date: 20180509
  Serious: No
  Sender: FDA-Public Use
  Company Number: US-JNJFOC-20180308289

PATIENT
  Sex: Male

DRUGS (5)
  1. LATANOPROST. [Concomitant]
     Active Substance: LATANOPROST
  2. LUPRON [Concomitant]
     Active Substance: LEUPROLIDE ACETATE
  3. PREDNISONE. [Concomitant]
     Active Substance: PREDNISONE
  4. ZYTIGA [Suspect]
     Active Substance: ABIRATERONE ACETATE
     Indication: PROSTATE CANCER
     Dosage: NDC : 57894-150-12
     Route: 048
     Dates: start: 20140423
  5. VITAMIN D3 [Concomitant]
     Active Substance: CHOLECALCIFEROL

REACTIONS (1)
  - Prostatic specific antigen increased [Unknown]
